FAERS Safety Report 8616634-4 (Version None)
Quarter: 2012Q3

REPORT INFORMATION
  Report Type: 
  Country: None (occurrence: None)
  Receive Date: 20120823
  Receipt Date: 20120821
  Transmission Date: 20120928
  Serious: Yes (Hospitalization)
  Sender: FDA-Public Use
  Company Number: US-ROCHE-1089174

PATIENT
  Sex: Female
  Weight: 88.8 kg

DRUGS (21)
  1. MABTHERA [Suspect]
     Indication: RHEUMATOID ARTHRITIS
     Dosage: COURSES OF
     Route: 042
     Dates: start: 20120425, end: 20120510
  2. DEPO-MEDROL [Concomitant]
     Indication: RHEUMATOID ARTHRITIS
     Dosage: 80
     Dates: start: 20120530, end: 20120530
  3. HALCION [Concomitant]
     Indication: INSOMNIA
     Dosage: 0.25
     Dates: start: 20090908
  4. RISPERDAL [Concomitant]
     Indication: INSOMNIA
     Dosage: 1.0
     Dates: start: 20110328
  5. REQUIP [Concomitant]
     Indication: RESTLESS LEGS SYNDROME
     Dosage: 0.5
     Dates: start: 20120327
  6. DEPO-MEDROL [Concomitant]
     Dosage: 20
     Dates: start: 20120530, end: 20120530
  7. CRESTOR [Concomitant]
     Indication: HYPERLIPIDAEMIA
     Dosage: 20
     Dates: start: 20041006
  8. LEXAPRO [Concomitant]
     Indication: ANXIETY
     Dosage: 10
     Dates: start: 20110131
  9. FOLIC ACID [Concomitant]
     Indication: PROPHYLAXIS
     Dosage: 1
     Dates: start: 20060409
  10. AMITIZA [Concomitant]
     Indication: CONSTIPATION
     Dosage: 24
     Dates: start: 20120327
  11. CALCIUM CARBONATE [Concomitant]
     Dosage: 1
     Dates: start: 20100611
  12. PREDNISONE TAB [Concomitant]
     Indication: RHEUMATOID ARTHRITIS
     Dosage: 7.5
     Dates: start: 20120416
  13. PRILOSEC [Concomitant]
     Indication: DYSPEPSIA
     Dosage: 20
     Dates: start: 20010814
  14. METHOTREXATE [Concomitant]
     Indication: RHEUMATOID ARTHRITIS
     Route: 048
     Dates: start: 20100208
  15. BUPIVACAINE HCL [Concomitant]
     Indication: RHEUMATOID ARTHRITIS
     Dosage: 1
     Dates: start: 20120530, end: 20120530
  16. BUPIVACAINE HCL [Concomitant]
     Dosage: 0.25
     Dates: start: 20120530, end: 20120530
  17. LORTAB [Concomitant]
     Indication: PAIN
     Dosage: 7.5
     Dates: start: 20090818
  18. ZANAFLEX [Concomitant]
     Indication: SPINAL OSTEOARTHRITIS
     Dosage: 2
     Dates: start: 20100611
  19. ZOVIRAX [Concomitant]
     Indication: APHTHOUS STOMATITIS
     Dosage: 800
     Dates: start: 20100524
  20. ASPIRIN [Concomitant]
     Indication: PROPHYLAXIS
     Dosage: 81
     Dates: start: 20090210
  21. ESTRACE [Concomitant]
     Dosage: 0.5
     Dates: start: 20090908

REACTIONS (4)
  - SEPSIS [None]
  - VOMITING [None]
  - DIARRHOEA [None]
  - NAUSEA [None]
